FAERS Safety Report 7410428-3 (Version None)
Quarter: 2011Q2

REPORT INFORMATION
  Report Type: 
  Country: None (occurrence: None)
  Receive Date: 20110412
  Receipt Date: 20110330
  Transmission Date: 20111010
  Serious: Yes (Hospitalization)
  Sender: FDA-Public Use
  Company Number: CH-BAYER-2011-027167

PATIENT
  Sex: Female

DRUGS (13)
  1. DAFALGAN [Suspect]
     Indication: PAIN
     Dosage: 1 G, QID
     Route: 048
     Dates: start: 20110219, end: 20110226
  2. CLEXANE [Suspect]
     Dosage: DAILY DOSE .2 ML
     Route: 058
     Dates: start: 20110219
  3. CALCIUM CARBONATE [Concomitant]
     Dosage: 500 MG, TID
     Route: 048
  4. NIMOTOP [Suspect]
     Dosage: DAILY DOSE 360 MG
     Route: 048
     Dates: start: 20110219, end: 20110304
  5. RECORMON [Concomitant]
     Dosage: 10000 IU, OW
     Route: 058
  6. BUPRENORPHINE HCL [Suspect]
     Dosage: DAILY DOSE .4 MG
     Route: 048
     Dates: start: 20110222, end: 20110301
  7. DUPHALAC [Concomitant]
     Dosage: UNK
     Route: 048
     Dates: start: 20110219
  8. PANTOZOL [Suspect]
     Dosage: 20 MG, TID
     Route: 048
     Dates: start: 20110219, end: 20110306
  9. NEPHROTRANS [Concomitant]
     Dosage: 500 MG, TID
     Route: 048
  10. CONCOR [Concomitant]
     Dosage: 5 MG, QD
     Route: 048
     Dates: start: 20110227
  11. CIPROXIN [Suspect]
     Indication: URINARY TRACT INFECTION
     Dosage: 500 MG, BID
     Route: 048
     Dates: start: 20110224, end: 20110302
  12. PRAVASTATIN [Suspect]
     Dosage: DAILY DOSE 40 MG
     Route: 048
     Dates: start: 20110221, end: 20110228
  13. CONCOR [Concomitant]
     Indication: HYPERTENSION
     Dosage: DAILY DOSE 5 MG
     Route: 048
     Dates: end: 20110220

REACTIONS (4)
  - CHOLESTATIC LIVER INJURY [None]
  - LIVER DISORDER [None]
  - TRANSAMINASES INCREASED [None]
  - PANCREATIC ENZYMES INCREASED [None]
